FAERS Safety Report 18540710 (Version 1)
Quarter: 2020Q4

REPORT INFORMATION
  Report Type: Spontaneous
  Country: US (occurrence: US)
  Receive Date: 20201123
  Receipt Date: 20201123
  Transmission Date: 20210114
  Serious: Yes (Other)
  Sender: FDA-Public Use
  Company Number: None

PATIENT
  Age: 8 Year
  Sex: Male
  Weight: 24.5 kg

DRUGS (4)
  1. ETOPOSIDE PHOSPHATE [Concomitant]
     Active Substance: ETOPOSIDE PHOSPHATE
  2. KYMRIAH [Suspect]
     Active Substance: TISAGENLECLEUCEL
     Indication: B-CELL LYMPHOMA REFRACTORY
     Dates: start: 20190212
  3. CYCLOPHOSPHAMLDE [Concomitant]
  4. FLUDARABINE [Concomitant]
     Active Substance: FLUDARABINE PHOSPHATE

REACTIONS (7)
  - Encephalitis [None]
  - Dysphagia [None]
  - Neurotoxicity [None]
  - Aphasia [None]
  - Dysphonia [None]
  - Leukoencephalopathy [None]
  - Mutism [None]

NARRATIVE: CASE EVENT DATE: 20190220
